FAERS Safety Report 23835126 (Version 1)
Quarter: 2024Q2

REPORT INFORMATION
  Report Type: Spontaneous
  Country: IE (occurrence: IE)
  Receive Date: 20240509
  Receipt Date: 20240509
  Transmission Date: 20240717
  Serious: Yes (Other)
  Sender: FDA-Public Use
  Company Number: IE-TEVA-VS-3187041

PATIENT
  Age: 63 Year
  Sex: Female

DRUGS (1)
  1. ALBUTEROL SULFATE [Suspect]
     Active Substance: ALBUTEROL SULFATE
     Indication: Asthma
     Dosage: 2.5MG/2.5ML
     Route: 055

REACTIONS (6)
  - Insomnia [Unknown]
  - Oropharyngeal pain [Recovering/Resolving]
  - Throat irritation [Unknown]
  - Dysphagia [Unknown]
  - Ear pain [Unknown]
  - Wrong technique in product usage process [Unknown]

NARRATIVE: CASE EVENT DATE: 20240401
